FAERS Safety Report 7254506-0 (Version None)
Quarter: 2011Q1

REPORT INFORMATION
  Report Type: 
  Country: None (occurrence: None)
  Receive Date: 20110129
  Receipt Date: 20100422
  Transmission Date: 20110831
  Serious: No
  Sender: FDA-Public Use
  Company Number: US-ABBOTT-10P-163-0641428-00

PATIENT
  Sex: Male

DRUGS (1)
  1. HUMIRA [Suspect]
     Indication: CROHN'S DISEASE
     Route: 058

REACTIONS (9)
  - BEDRIDDEN [None]
  - PHLEBITIS [None]
  - ASTHENIA [None]
  - FATIGUE [None]
  - NAUSEA [None]
  - VOMITING [None]
  - DIARRHOEA [None]
  - PYREXIA [None]
  - TREMOR [None]
